FAERS Safety Report 11205787 (Version 1)
Quarter: 2015Q2

REPORT INFORMATION
  Report Type: Spontaneous
  Country: US (occurrence: US)
  Receive Date: 20150622
  Receipt Date: 20150622
  Transmission Date: 20150821
  Serious: No
  Sender: FDA-Public Use
  Company Number: US-ASTRAZENECA-2015SE57047

PATIENT
  Sex: Female
  Weight: 81.6 kg

DRUGS (12)
  1. CALCIUM [Concomitant]
     Active Substance: CALCIUM
  2. BYDUREON [Suspect]
     Active Substance: EXENATIDE
     Indication: TYPE 2 DIABETES MELLITUS
     Route: 058
  3. PRILOSEC [Suspect]
     Active Substance: OMEPRAZOLE MAGNESIUM
     Route: 048
  4. IRBESARTAN. [Concomitant]
     Active Substance: IRBESARTAN
  5. FLUOXETINE [Concomitant]
     Active Substance: FLUOXETINE\FLUOXETINE HYDROCHLORIDE
  6. VITAMIN K2 [Concomitant]
     Active Substance: MENAQUINONE 6
  7. OCUVITE [Concomitant]
     Active Substance: VITAMINS
  8. ASPIRIN. [Concomitant]
     Active Substance: ASPIRIN
  9. PROBIOTIC [Concomitant]
     Active Substance: PROBIOTICS NOS
  10. METFORMIN [Concomitant]
     Active Substance: METFORMIN HYDROCHLORIDE
     Route: 048
  11. AMLODIPINE [Concomitant]
     Active Substance: AMLODIPINE BESYLATE
  12. CORVASTATIN [Concomitant]

REACTIONS (5)
  - Injection site extravasation [Unknown]
  - Underdose [Unknown]
  - Injection site bruising [Recovering/Resolving]
  - Abdominal discomfort [Unknown]
  - Nausea [Unknown]
